FAERS Safety Report 6272340-5 (Version None)
Quarter: 2009Q3

REPORT INFORMATION
  Report Type: 
  Country: None (occurrence: None)
  Receive Date: 20090717
  Receipt Date: 20090709
  Transmission Date: 20100115
  Serious: Yes (Death, Other)
  Sender: FDA-Public Use
  Company Number: GB-PFIZER INC-2009238559

PATIENT
  Age: 17 Year

DRUGS (6)
  1. FLUCONAZOLE [Suspect]
     Dosage: 400 MG, 2X/DAY
  2. FLUCONAZOLE [Suspect]
     Dosage: 800 MG, 1X/DAY
  3. FLUCONAZOLE [Suspect]
     Dosage: 400 MG, 1X/DAY
     Route: 048
  4. STAVUDINE [Suspect]
     Indication: HIV INFECTION
  5. LAMIVUDINE [Suspect]
     Indication: HIV INFECTION
  6. NEVIRAPINE [Suspect]
     Indication: HIV INFECTION

REACTIONS (9)
  - BACK PAIN [None]
  - DISSEMINATED CRYPTOCOCCOSIS [None]
  - GRAND MAL CONVULSION [None]
  - HEADACHE [None]
  - IMMUNE RECONSTITUTION SYNDROME [None]
  - MENINGITIS CRYPTOCOCCAL [None]
  - MUSCULAR WEAKNESS [None]
  - NECK PAIN [None]
  - SKIN LESION [None]
